FAERS Safety Report 8442931-1 (Version None)
Quarter: 2012Q2

REPORT INFORMATION
  Report Type: 
  Country: None (occurrence: None)
  Receive Date: 20120615
  Receipt Date: 20120601
  Transmission Date: 20120825
  Serious: Yes (Other)
  Sender: FDA-Public Use
  Company Number: JP-AMGEN-JPNSP2012021392

PATIENT
  Sex: Female
  Weight: 2.486 kg

DRUGS (2)
  1. ENBREL [Suspect]
     Dosage: 50 MG, WEEKLY
     Route: 064
  2. ENBREL [Suspect]
     Indication: RHEUMATOID ARTHRITIS
     Dosage: 50 MG, WEEKLY
     Route: 064

REACTIONS (4)
  - PREMATURE BABY [None]
  - BLOOD GLUCOSE DECREASED [None]
  - LOW BIRTH WEIGHT BABY [None]
  - MATERNAL EXPOSURE TIMING UNSPECIFIED [None]
